FAERS Safety Report 4797272-0 (Version None)
Quarter: 2005Q4

REPORT INFORMATION
  Report Type: 
  Country: None (occurrence: None)
  Receive Date: 20051013
  Receipt Date: 20051011
  Transmission Date: 20060501
  Serious: Yes (Hospitalization, Other)
  Sender: FDA-Public Use
  Company Number: US-GLAXOSMITHKLINE-A0577826A

PATIENT
  Age: 69 Year
  Sex: Female

DRUGS (10)
  1. FLONASE [Suspect]
     Indication: RHINITIS ALLERGIC
     Dosage: 1SPR THREE TIMES PER DAY
     Route: 045
  2. LASIX [Concomitant]
  3. PREMARIN [Concomitant]
  4. TOPROL-XL [Concomitant]
  5. SULAR [Concomitant]
  6. PHENOBARBITAL TAB [Concomitant]
  7. THYROXINE [Concomitant]
  8. ALPRAZOLAM [Concomitant]
  9. POTASSIUM [Concomitant]
  10. NEXIUM [Concomitant]

REACTIONS (7)
  - ASTHMA [None]
  - CHEST PAIN [None]
  - CHOKING [None]
  - COUGH [None]
  - DYSPNOEA [None]
  - FACIAL PALSY [None]
  - WHEEZING [None]
